FAERS Safety Report 5599749-7 (Version None)
Quarter: 2008Q1

REPORT INFORMATION
  Report Type: 
  Country: None (occurrence: None)
  Receive Date: 20080123
  Receipt Date: 20080116
  Transmission Date: 20080703
  Serious: Yes (Hospitalization)
  Sender: FDA-Public Use
  Company Number: FR-BRISTOL-MYERS SQUIBB COMPANY-14044309

PATIENT
  Age: 81 Year
  Sex: Female

DRUGS (3)
  1. COAPROVEL TABS 150MG/12.5MG [Suspect]
     Dosage: 1 DOSAGE FORM = 150MG/12.5MG
     Route: 048
     Dates: end: 20070909
  2. VICTAN [Suspect]
     Route: 048
     Dates: end: 20070909
  3. ELAVIL [Suspect]
     Route: 048
     Dates: end: 20070909

REACTIONS (3)
  - FALL [None]
  - MALAISE [None]
  - ORTHOSTATIC HYPOTENSION [None]
